FAERS Safety Report 17638525 (Version 1)
Quarter: 2020Q2

REPORT INFORMATION
  Report Type: Report from Study
  Country: US (occurrence: US)
  Receive Date: 20200407
  Receipt Date: 20200407
  Transmission Date: 20200713
  Serious: No
  Sender: FDA-Public Use
  Company Number: NVSC2020US089952

PATIENT
  Age: 75 Year
  Sex: Male

DRUGS (1)
  1. ENTRESTO [Suspect]
     Active Substance: SACUBITRIL\VALSARTAN
     Indication: CARDIAC FAILURE
     Dosage: 24 MG, ONCE2SDO
     Route: 048
     Dates: start: 20191117, end: 20191122

REACTIONS (4)
  - Fatigue [Recovering/Resolving]
  - Hypotension [Recovered/Resolved]
  - Pruritus [Recovered/Resolved]
  - Blood potassium abnormal [Recovered/Resolved with Sequelae]

NARRATIVE: CASE EVENT DATE: 20191117
